FAERS Safety Report 4654222-5 (Version None)
Quarter: 2005Q2

REPORT INFORMATION
  Report Type: 
  Country: None (occurrence: None)
  Receive Date: 20050404
  Receipt Date: 20041214
  Transmission Date: 20051028
  Serious: No
  Sender: FDA-Public Use
  Company Number: USA041286149

PATIENT
  Age: 58 Year
  Sex: Female

DRUGS (3)
  1. CYMBALTA [Suspect]
     Dosage: 60 MG
  2. SEROQUEL [Concomitant]
  3. PROLIXIN DECANOATE (FLUPHENAZINE DECANOATE) [Concomitant]

REACTIONS (1)
  - BLOOD PRESSURE INCREASED [None]
